FAERS Safety Report 16779905 (Version 1)
Quarter: 2019Q3

REPORT INFORMATION
  Report Type: Spontaneous
  Country: US (occurrence: US)
  Receive Date: 20190906
  Receipt Date: 20190906
  Transmission Date: 20191005
  Serious: Yes (Hospitalization, Other)
  Sender: FDA-Public Use
  Company Number: US-SA-2019SA242106

PATIENT
  Age: 83 Year
  Sex: Female
  Weight: 93 kg

DRUGS (2)
  1. ENOXAPARIN SODIUM. [Suspect]
     Active Substance: ENOXAPARIN SODIUM
     Indication: DEEP VEIN THROMBOSIS
     Dosage: 100 MG, QD
     Route: 065
     Dates: start: 201906, end: 201906
  2. LENVIMA [Suspect]
     Active Substance: LENVATINIB
     Indication: HEPATOCELLULAR CARCINOMA
     Dosage: 12 MG, QD
     Route: 048
     Dates: start: 20190504, end: 201906

REACTIONS (15)
  - Deep vein thrombosis [Unknown]
  - Blood potassium decreased [Not Recovered/Not Resolved]
  - Nausea [Unknown]
  - Back pain [Unknown]
  - Hypotension [Unknown]
  - Cardiac arrest [Not Recovered/Not Resolved]
  - Pain in extremity [Not Recovered/Not Resolved]
  - Weight decreased [Unknown]
  - Constipation [Unknown]
  - Constipation [Not Recovered/Not Resolved]
  - Dehydration [Not Recovered/Not Resolved]
  - Decreased appetite [Unknown]
  - Fatigue [Unknown]
  - Vomiting [Unknown]
  - Skin exfoliation [Not Recovered/Not Resolved]

NARRATIVE: CASE EVENT DATE: 201905
